FAERS Safety Report 7207159-1 (Version None)
Quarter: 2011Q1

REPORT INFORMATION
  Report Type: 
  Country: None (occurrence: None)
  Receive Date: 20110103
  Receipt Date: 20101228
  Transmission Date: 20110831
  Serious: Yes (Life-Threatening, Hospitalization)
  Sender: FDA-Public Use
  Company Number: JP-ROCHE-723715

PATIENT
  Sex: Female
  Weight: 55 kg

DRUGS (13)
  1. AVASTIN [Suspect]
     Indication: COLON CANCER
     Dosage: DOSE: 280 MG.
     Route: 041
     Dates: start: 20090902, end: 20100609
  2. ALDACTONE [Concomitant]
     Route: 048
     Dates: start: 20091021
  3. TAKEPRON [Concomitant]
     Route: 048
     Dates: start: 20090909
  4. LOXONIN [Concomitant]
     Route: 048
     Dates: start: 20091118
  5. ASPIRIN [Concomitant]
     Dosage: 125MG-80MG-80MG 3 DAY
     Route: 048
     Dates: start: 20100331
  6. LEVOFOLINATE [Concomitant]
     Route: 042
     Dates: start: 20090902
  7. ALDACTONE [Concomitant]
     Route: 048
     Dates: start: 20070329, end: 20091021
  8. ASPIRIN [Concomitant]
     Route: 048
     Dates: start: 20100120
  9. VOLTAREN [Concomitant]
     Route: 048
     Dates: start: 20090909, end: 20091118
  10. FLUOROURACIL [Concomitant]
     Dosage: FORM: INTRAVENOUS BOLUS.
     Route: 050
     Dates: start: 20090902
  11. LASIX [Concomitant]
     Route: 048
     Dates: start: 20091021
  12. FLUOROURACIL [Concomitant]
     Route: 050
     Dates: start: 20090902
  13. ELPLAT [Concomitant]
     Route: 042
     Dates: start: 20090902

REACTIONS (4)
  - INTESTINAL PERFORATION [None]
  - DISSEMINATED INTRAVASCULAR COAGULATION [None]
  - ABDOMINAL ABSCESS [None]
  - PYOTHORAX [None]
